FAERS Safety Report 17877612 (Version 2)
Quarter: 2020Q2

REPORT INFORMATION
  Report Type: Spontaneous
  Country: US (occurrence: US)
  Receive Date: 20200609
  Receipt Date: 20200616
  Transmission Date: 20200714
  Serious: Yes (Other)
  Sender: FDA-Public Use
  Company Number: US-PFIZER INC-2020222891

PATIENT
  Age: 61 Year
  Sex: Female
  Weight: 56.7 kg

DRUGS (1)
  1. PANTOPRAZOLE [Suspect]
     Active Substance: PANTOPRAZOLE
     Dosage: 40 MG, DAILY
     Dates: end: 201912

REACTIONS (5)
  - Fatigue [Unknown]
  - Abdominal pain upper [Unknown]
  - Insomnia [Unknown]
  - Laryngospasm [Recovered/Resolved]
  - Dyspnoea [Recovered/Resolved]

NARRATIVE: CASE EVENT DATE: 20141126
